FAERS Safety Report 6294738-1 (Version None)
Quarter: 2009Q3

REPORT INFORMATION
  Report Type: 
  Country: None (occurrence: None)
  Receive Date: 20090803
  Receipt Date: 20090724
  Transmission Date: 20100115
  Serious: Yes (Other)
  Sender: FDA-Public Use
  Company Number: IE-JNJFOC-20090708369

PATIENT
  Age: 39 Year
  Sex: Male

DRUGS (3)
  1. INVEGA [Suspect]
     Route: 048
  2. INVEGA [Suspect]
     Indication: DRUG USE FOR UNKNOWN INDICATION
     Route: 048
  3. DALMANE [Interacting]
     Indication: INSOMNIA
     Route: 065

REACTIONS (3)
  - DRUG INTERACTION [None]
  - PSYCHOTIC DISORDER [None]
  - SLEEP DISORDER [None]
